FAERS Safety Report 13839514 (Version 1)
Quarter: 2017Q3

REPORT INFORMATION
  Report Type: Spontaneous
  Country: CN (occurrence: CN)
  Receive Date: 20170807
  Receipt Date: 20170807
  Transmission Date: 20171127
  Serious: Yes (Life-Threatening, Hospitalization)
  Sender: FDA-Public Use
  Company Number: CN-GLENMARK PHARMACEUTICALS-2017GMK028385

PATIENT
  Age: 52 Year
  Sex: Female

DRUGS (1)
  1. LIDOCAINE. [Suspect]
     Active Substance: LIDOCAINE
     Indication: ANAESTHESIA
     Dosage: UNK
     Route: 061
     Dates: start: 20161110

REACTIONS (10)
  - Cardio-respiratory arrest [Unknown]
  - Ventricular extrasystoles [Unknown]
  - Pericardial fibrosis [Unknown]
  - Respiratory tract haemorrhage [Unknown]
  - Pleural thickening [Unknown]
  - Sinus rhythm [Unknown]
  - Dyspnoea [Unknown]
  - Coma [Unknown]
  - Pulmonary alveolar haemorrhage [Unknown]
  - Toxicity to various agents [Unknown]

NARRATIVE: CASE EVENT DATE: 20161110
